FAERS Safety Report 16275043 (Version 1)
Quarter: 2019Q2

REPORT INFORMATION
  Report Type: Spontaneous
  Country: US (occurrence: US)
  Receive Date: 20190503
  Receipt Date: 20190503
  Transmission Date: 20190711
  Serious: No
  Sender: FDA-Public Use
  Company Number: None

PATIENT
  Sex: Male
  Weight: 81.6 kg

DRUGS (7)
  1. TAMSULOSIN [Concomitant]
     Active Substance: TAMSULOSIN
  2. LUPRON DEPOT [Concomitant]
     Active Substance: LEUPROLIDE ACETATE
  3. NAPROXEN. [Concomitant]
     Active Substance: NAPROXEN
  4. PREDNISONE. [Suspect]
     Active Substance: PREDNISONE
     Indication: PANCREATIC CARCINOMA
     Route: 048
     Dates: start: 20180802
  5. ALLOPURINOL. [Concomitant]
     Active Substance: ALLOPURINOL
  6. METFORMIN [Concomitant]
     Active Substance: METFORMIN HYDROCHLORIDE
  7. ABIRATERONE ACETATE 250 MG TABLET [Concomitant]
     Dates: start: 20190201

REACTIONS (2)
  - Incorrect dose administered [None]
  - Treatment noncompliance [None]
